FAERS Safety Report 6758545-5 (Version None)
Quarter: 2010Q2

REPORT INFORMATION
  Report Type: 
  Country: None (occurrence: None)
  Receive Date: 20100607
  Receipt Date: 20100528
  Transmission Date: 20101027
  Serious: Yes (Life-Threatening)
  Sender: FDA-Public Use
  Company Number: B0659232A

PATIENT
  Sex: Female

DRUGS (2)
  1. ZINACEF [Suspect]
     Indication: ANTIBIOTIC PROPHYLAXIS
     Dosage: 1500MG PER DAY
     Dates: start: 20100215
  2. FLAGYL [Concomitant]

REACTIONS (3)
  - ANAPHYLACTIC REACTION [None]
  - DYSPNOEA [None]
  - RASH ERYTHEMATOUS [None]
